FAERS Safety Report 5168565-2 (Version None)
Quarter: 2006Q4

REPORT INFORMATION
  Report Type: 
  Country: None (occurrence: None)
  Receive Date: 20061208
  Receipt Date: 20061128
  Transmission Date: 20070319
  Serious: Yes (Other)
  Sender: FDA-Public Use
  Company Number: DE-ABBOTT-06P-062-0351826-00

PATIENT
  Sex: Male
  Weight: 92 kg

DRUGS (15)
  1. ZEMPLAR [Suspect]
     Indication: HYPERPARATHYROIDISM SECONDARY
     Route: 042
     Dates: start: 20060823, end: 20061023
  2. CYCLOSPORINE [Concomitant]
     Indication: DRUG USE FOR UNKNOWN INDICATION
  3. CELLCEPT 250MG [Concomitant]
     Indication: DRUG USE FOR UNKNOWN INDICATION
  4. RAMIPRIL ABZ 10 MG [Concomitant]
     Indication: DRUG USE FOR UNKNOWN INDICATION
  5. METOHEXAL-SUCC [Concomitant]
     Indication: DRUG USE FOR UNKNOWN INDICATION
  6. NITRENDIPINE [Concomitant]
     Indication: DRUG USE FOR UNKNOWN INDICATION
  7. MOXONIDIN-CT 0.2 MG FILM [Concomitant]
     Indication: DRUG USE FOR UNKNOWN INDICATION
  8. TOREM 200 [Concomitant]
     Indication: DRUG USE FOR UNKNOWN INDICATION
  9. TOREM 200 [Concomitant]
  10. BAYOTENSIN AKUT PHIOLEN 4X1 ML LOE [Concomitant]
     Indication: DRUG USE FOR UNKNOWN INDICATION
  11. RENAGEL [Concomitant]
     Indication: DRUG USE FOR UNKNOWN INDICATION
  12. MIMPARA 30 MG [Concomitant]
     Indication: DRUG USE FOR UNKNOWN INDICATION
  13. ALLO-CT 300 MG [Concomitant]
     Indication: DRUG USE FOR UNKNOWN INDICATION
  14. PARACETAMOL AL COMP [Concomitant]
     Indication: DRUG USE FOR UNKNOWN INDICATION
  15. ASS 100 - 1A PHARMA [Concomitant]
     Indication: DRUG USE FOR UNKNOWN INDICATION

REACTIONS (1)
  - DYSPNOEA [None]
